FAERS Safety Report 9458308 (Version 1)
Quarter: 2013Q3

REPORT INFORMATION
  Report Type: Spontaneous
  Country: US (occurrence: US)
  Receive Date: 20130814
  Receipt Date: 20130814
  Transmission Date: 20140515
  Serious: No
  Sender: FDA-Public Use
  Company Number: US-B.I. PHARMACEUTICALS,INC./RIDGEFIELD-2013-BI-23929BP

PATIENT
  Age: 66 Year
  Sex: Male

DRUGS (7)
  1. COMBIVENT [Suspect]
     Indication: CHRONIC OBSTRUCTIVE PULMONARY DISEASE
     Dosage: STRENGTH: 20 MCG / 100 MCG;
     Route: 055
     Dates: start: 201305
  2. MIRTAZAPINE [Concomitant]
     Indication: DEPRESSION
     Dosage: 30 MG
     Route: 048
  3. QUETIAPINE FUMARATE [Concomitant]
     Indication: ANXIETY
     Dosage: 700 MG
     Route: 048
  4. FINASTERIDE [Concomitant]
     Dosage: 5 MG
     Route: 048
  5. SERTRALINE [Concomitant]
     Indication: DEPRESSION
     Dosage: 100 MG
     Route: 048
  6. DIALYVITE [Concomitant]
  7. B12 [Concomitant]
     Dosage: 1000 MG
     Route: 048

REACTIONS (1)
  - Overdose [Not Recovered/Not Resolved]
